FAERS Safety Report 5887934-6 (Version None)
Quarter: 2008Q3

REPORT INFORMATION
  Report Type: 
  Country: None (occurrence: None)
  Receive Date: 20080916
  Receipt Date: 20080905
  Transmission Date: 20090109
  Serious: Yes (Hospitalization)
  Sender: FDA-Public Use
  Company Number: 2008-03247

PATIENT
  Sex: Female
  Weight: 71 kg

DRUGS (1)
  1. VELCADE [Suspect]
     Indication: THYROID CANCER
     Dosage: 1.3 MG/M3, IV BOLUS
     Route: 040
     Dates: start: 20080804, end: 20080817

REACTIONS (3)
  - ARRHYTHMIA SUPRAVENTRICULAR [None]
  - NODAL ARRHYTHMIA [None]
  - PLEURAL EFFUSION [None]
